FAERS Safety Report 12197522 (Version 1)
Quarter: 2016Q1

REPORT INFORMATION
  Report Type: Spontaneous
  Country: JP (occurrence: JP)
  Receive Date: 20160322
  Receipt Date: 20160322
  Transmission Date: 20160526
  Serious: Yes (Hospitalization)
  Sender: FDA-Public Use
  Company Number: JP-009507513-1603JPN009534

PATIENT

DRUGS (2)
  1. BELSOMRA [Suspect]
     Active Substance: SUVOREXANT
     Dosage: DAILY DOSAGE UNKNOWN
     Route: 048
  2. CLARITH [Concomitant]
     Active Substance: CLARITHROMYCIN
     Dosage: DAILY DOSAGE UNKNOWN
     Route: 065

REACTIONS (2)
  - Labelled drug-drug interaction medication error [Unknown]
  - Delirium [Unknown]

NARRATIVE: CASE EVENT DATE: 201603
